FAERS Safety Report 15641679 (Version 1)
Quarter: 2018Q4

REPORT INFORMATION
  Report Type: Spontaneous
  Country: US (occurrence: US)
  Receive Date: 20181121
  Receipt Date: 20181121
  Transmission Date: 20190205
  Serious: No
  Sender: FDA-Public Use
  Company Number: US-ACCORD-072066

PATIENT
  Age: 53 Year
  Sex: Female

DRUGS (7)
  1. HYDROCHLOROTHIAZIDE ACCORD [Suspect]
     Active Substance: HYDROCHLOROTHIAZIDE
     Indication: SWELLING
     Dosage: ONCE OR TWICE A WEEK, AS REQUIRED
     Route: 048
     Dates: start: 201804, end: 20180902
  2. CYANOCOBALAMIN. [Concomitant]
     Active Substance: CYANOCOBALAMIN
  3. MINERALS NOS/VITAMINS NOS [Concomitant]
  4. DULOXETINE/DULOXETINE HYDROCHLORIDE [Concomitant]
  5. MONTELUKAST [Concomitant]
     Active Substance: MONTELUKAST SODIUM
  6. ERGOCALCIFEROL. [Concomitant]
     Active Substance: ERGOCALCIFEROL
  7. FISH OIL [Concomitant]
     Active Substance: FISH OIL

REACTIONS (5)
  - Pruritus [Unknown]
  - Off label use [Unknown]
  - Feeling abnormal [Unknown]
  - Rash generalised [Unknown]
  - Dry skin [Unknown]
